FAERS Safety Report 7681322-8 (Version None)
Quarter: 2011Q3

REPORT INFORMATION
  Report Type: 
  Country: None (occurrence: None)
  Receive Date: 20110812
  Receipt Date: 20110808
  Transmission Date: 20111222
  Serious: Yes (Other)
  Sender: FDA-Public Use
  Company Number: US-BAYER-2011-002832

PATIENT
  Sex: Female
  Weight: 82.993 kg

DRUGS (46)
  1. CARTIA XT [Concomitant]
  2. GADOLINIUM IN UNSPECIFIED DRUG [Suspect]
     Indication: ANGIOGRAM
     Dosage: UNK
     Dates: start: 20031020
  3. PROHANCE [Suspect]
     Indication: NUCLEAR MAGNETIC RESONANCE IMAGING
  4. PROHANCE [Suspect]
     Indication: ANGIOGRAM
  5. CLOBETASOL PROPIONATE [Concomitant]
     Dosage: UNK UNK, BID
  6. ARANESP [Concomitant]
  7. MYFORTIC [Concomitant]
  8. VALCYTE [Concomitant]
  9. ZAROXOLYN [Concomitant]
  10. CLONIDINE [Concomitant]
  11. NEPHROVITE [VIT C,VIT H,B5,B12,B9,B3,B6,B2,B1 HCL] [Concomitant]
  12. RENAGEL [Concomitant]
  13. EPOGEN [Concomitant]
  14. ZESTRIL [Concomitant]
  15. OMNISCAN [Suspect]
  16. FERRLECIT [Concomitant]
  17. NIFEDIPINE [Concomitant]
  18. MAGNEVIST [Suspect]
     Indication: NUCLEAR MAGNETIC RESONANCE IMAGING
  19. MULTIHANCE [Suspect]
     Indication: NUCLEAR MAGNETIC RESONANCE IMAGING
  20. PROGRAF [Concomitant]
  21. ACCUPRIL [Concomitant]
  22. TOPROL-XL [Concomitant]
  23. PROPRANOLOL [Concomitant]
  24. PREDNISONE [Concomitant]
  25. MULTIHANCE [Suspect]
     Indication: ANGIOGRAM
  26. VYTORIN [Concomitant]
  27. FERROUS SULFATE TAB [Concomitant]
  28. DEPAKOTE [Concomitant]
  29. PLAVIX [Concomitant]
  30. FUROSEMIDE [Concomitant]
  31. PROCRIT [Concomitant]
  32. MAGNEVIST [Suspect]
     Indication: ANGIOGRAM
  33. OMNISCAN [Suspect]
     Indication: NUCLEAR MAGNETIC RESONANCE IMAGING
     Dosage: 60 ML, ONCE
     Dates: start: 20060721, end: 20060721
  34. OPTIMARK [Suspect]
     Indication: NUCLEAR MAGNETIC RESONANCE IMAGING
  35. DIGOXIN [Concomitant]
  36. HUMALOG [Concomitant]
  37. LANTUS [Concomitant]
  38. LYRICA [Concomitant]
  39. TERAZOSIN HCL [Concomitant]
  40. ZEMPLAR [Concomitant]
  41. OMNISCAN [Suspect]
     Indication: ANGIOGRAM
  42. OPTIMARK [Suspect]
     Indication: ANGIOGRAM
  43. CALCITRIOL [Concomitant]
  44. CELEXA [Concomitant]
  45. FOSRENOL [Concomitant]
  46. NEURONTIN [Concomitant]

REACTIONS (15)
  - ARTERIOSCLEROSIS CORONARY ARTERY [None]
  - NEPHROGENIC SYSTEMIC FIBROSIS [None]
  - SKIN EXFOLIATION [None]
  - SKIN PLAQUE [None]
  - PAIN [None]
  - AORTIC CALCIFICATION [None]
  - JOINT RANGE OF MOTION DECREASED [None]
  - SKIN INDURATION [None]
  - SKIN FIBROSIS [None]
  - SKIN TIGHTNESS [None]
  - SKIN HYPERTROPHY [None]
  - PRURITUS [None]
  - SKIN LESION [None]
  - JOINT CONTRACTURE [None]
  - MUSCULOSKELETAL STIFFNESS [None]
